FAERS Safety Report 6568172-0 (Version None)
Quarter: 2010Q1

REPORT INFORMATION
  Report Type: 
  Country: None (occurrence: None)
  Receive Date: 20100203
  Receipt Date: 20100129
  Transmission Date: 20100710
  Serious: Yes (Hospitalization)
  Sender: FDA-Public Use
  Company Number: DK-PFIZER INC-2010012081

PATIENT
  Age: 43 Year
  Sex: Female

DRUGS (1)
  1. SALAZOPYRIN [Suspect]
     Indication: ANKYLOSING SPONDYLITIS
     Dosage: 1000MG IN THE MORNING + 500MG IN THE EVENING
     Route: 048
     Dates: start: 20090930, end: 20091030

REACTIONS (4)
  - ERYTHEMA [None]
  - LEUKOPENIA [None]
  - LIVER DISORDER [None]
  - PYREXIA [None]
